FAERS Safety Report 10273063 (Version 1)
Quarter: 2014Q2

REPORT INFORMATION
  Report Type: Spontaneous
  Country: FR (occurrence: None)
  Receive Date: 20140630
  Receipt Date: 20140630
  Transmission Date: 20141212
  Serious: Yes (Hospitalization)
  Sender: FDA-Public Use
  Company Number: FR-016124

PATIENT
  Age: 36 Year
  Sex: Female

DRUGS (3)
  1. DECAPEPTYL [Suspect]
     Indication: IN VITRO FERTILISATION
     Route: 058
     Dates: start: 20140118, end: 20140129
  2. MENOPUR [Suspect]
     Indication: IN VITRO FERTILISATION
     Route: 058
     Dates: start: 20140118, end: 20140129
  3. GONADOTROPHIN CHORIONIC [Suspect]
     Dosage: (10000 IU 1X, SINGLE INTAKE INTRAMUSCULAR)
     Route: 030
     Dates: start: 20140130

REACTIONS (3)
  - Ovarian hyperstimulation syndrome [None]
  - Dyspnoea [None]
  - Ascites [None]
